FAERS Safety Report 13578796 (Version 2)
Quarter: 2017Q2

REPORT INFORMATION
  Report Type: Report from Study
  Country: US (occurrence: US)
  Receive Date: 20170524
  Receipt Date: 20170616
  Transmission Date: 20170830
  Serious: Yes (Other)
  Sender: FDA-Public Use
  Company Number: US-JAZZ-2017-US-005270

PATIENT
  Age: 61 Year
  Sex: Female

DRUGS (4)
  1. VIVACTIL [Suspect]
     Active Substance: PROTRIPTYLINE HYDROCHLORIDE
     Indication: PRODUCT USED FOR UNKNOWN INDICATION
     Dosage: 5 MG, QD
  2. XYREM [Suspect]
     Active Substance: SODIUM OXYBATE
     Indication: CATAPLEXY
     Dosage: 2.5 G, BID
     Route: 048
     Dates: start: 201704, end: 201704
  3. XYREM [Suspect]
     Active Substance: SODIUM OXYBATE
     Dosage: 2.25 G, BID
     Route: 048
     Dates: start: 2017
  4. XYREM [Suspect]
     Active Substance: SODIUM OXYBATE
     Indication: NARCOLEPSY
     Dosage: 2 G, QD
     Route: 048
     Dates: start: 201704, end: 201704

REACTIONS (8)
  - Constipation [Unknown]
  - Nausea [Unknown]
  - Intentional product use issue [Unknown]
  - Sudden onset of sleep [Unknown]
  - Urine output decreased [Not Recovered/Not Resolved]
  - Drug dose omission [Unknown]
  - Wrong technique in product usage process [Unknown]
  - Dry mouth [Not Recovered/Not Resolved]

NARRATIVE: CASE EVENT DATE: 201704
